FAERS Safety Report 6413976-8 (Version None)
Quarter: 2009Q4

REPORT INFORMATION
  Report Type: 
  Country: None (occurrence: None)
  Receive Date: 20091023
  Receipt Date: 20091023
  Transmission Date: 20100525
  Serious: Yes (Other)
  Sender: FDA-Public Use
  Company Number: None

PATIENT
  Age: 37 Year
  Sex: Female
  Weight: 50 kg

DRUGS (1)
  1. HUMIRA [Suspect]
     Indication: RHEUMATOID ARTHRITIS
     Dosage: 40 MG EVERY 2 WEEKS SUBCUTANEOUS INJECTION, FATTY (057)
     Route: 058
     Dates: start: 20091016

REACTIONS (9)
  - DIZZINESS [None]
  - DYSSTASIA [None]
  - FATIGUE [None]
  - HYPOPHAGIA [None]
  - LETHARGY [None]
  - MYALGIA [None]
  - PAIN [None]
  - RHINORRHOEA [None]
  - SENSATION OF HEAVINESS [None]
